FAERS Safety Report 16469065 (Version 1)
Quarter: 2019Q2

REPORT INFORMATION
  Report Type: Spontaneous
  Country: US (occurrence: US)
  Receive Date: 20190514
  Receipt Date: 20190514
  Transmission Date: 20190711
  Serious: Yes (Other)
  Sender: FDA-Public Use
  Company Number: None

PATIENT
  Age: 75 Year
  Sex: Female
  Weight: 56.7 kg

DRUGS (2)
  1. FORTEO [Concomitant]
     Active Substance: TERIPARATIDE
  2. FORTEO [Suspect]
     Active Substance: TERIPARATIDE
     Indication: OSTEOCHONDROSIS
     Dosage: ?          QUANTITY:1 DF DOSAGE FORM;OTHER ROUTE:INJECTION?
     Route: 058
     Dates: start: 201709

REACTIONS (2)
  - Arthralgia [None]
  - Skin burning sensation [None]
